FAERS Safety Report 7423497-1 (Version None)
Quarter: 2011Q2

REPORT INFORMATION
  Report Type: 
  Country: None (occurrence: None)
  Receive Date: 20110407
  Receipt Date: 20110329
  Transmission Date: 20111010
  Serious: Yes (Death, Hospitalization)
  Sender: FDA-Public Use
  Company Number: 2010AC000281

PATIENT
  Age: 82 Year
  Sex: Female
  Weight: 52.1 kg

DRUGS (24)
  1. CIPRO [Concomitant]
  2. PLAVIX [Concomitant]
  3. AMIODARONE [Concomitant]
  4. DOBUTAMINE HYDROCHLORIDE [Concomitant]
  5. DIGIBIND [Concomitant]
  6. POTASSIUM [Concomitant]
  7. MORPHINE [Concomitant]
  8. NADOLOL [Concomitant]
  9. XANAX [Concomitant]
  10. ALBUTEROL [Concomitant]
  11. IV FLUIDS [Concomitant]
  12. ACETAMINOPHEN [Concomitant]
  13. ATIVAN [Concomitant]
  14. QUININE SULFATE [Concomitant]
  15. WELLBUTRIN [Concomitant]
  16. HYDROCORTISONE [Concomitant]
  17. DIGOXIN [Suspect]
     Dosage: 0.125 MG; QD; PO
     Route: 048
     Dates: start: 20040625, end: 20080410
  18. SIMVASTATIN [Concomitant]
  19. FUROSEMIDE [Concomitant]
  20. DOPAMINE HCL [Concomitant]
  21. CARDENE [Concomitant]
  22. SPIRIVA [Concomitant]
  23. PROTONIX [Concomitant]
  24. ATROPINE [Concomitant]

REACTIONS (31)
  - MENTAL DISORDER [None]
  - ABDOMINAL PAIN UPPER [None]
  - BLOOD POTASSIUM DECREASED [None]
  - SKIN LESION EXCISION [None]
  - HEART RATE IRREGULAR [None]
  - HYDROCEPHALUS [None]
  - RENAL FAILURE [None]
  - CHEYNE-STOKES RESPIRATION [None]
  - CEREBROVASCULAR ACCIDENT [None]
  - TOXICITY TO VARIOUS AGENTS [None]
  - DIARRHOEA [None]
  - DECREASED APPETITE [None]
  - ENCEPHALOMALACIA [None]
  - VENTRICULAR TACHYCARDIA [None]
  - ACUTE MYOCARDIAL INFARCTION [None]
  - MULTIPLE INJURIES [None]
  - HEART RATE DECREASED [None]
  - VENTRICULAR FIBRILLATION [None]
  - COMA [None]
  - HEADACHE [None]
  - HYPOTENSION [None]
  - URINARY TRACT INFECTION [None]
  - ATRIOVENTRICULAR DISSOCIATION [None]
  - PAIN [None]
  - HYPERTENSION [None]
  - DEHYDRATION [None]
  - CEREBRAL ISCHAEMIA [None]
  - TERMINAL STATE [None]
  - TRANSIENT ISCHAEMIC ATTACK [None]
  - ACTIVITIES OF DAILY LIVING IMPAIRED [None]
  - CARDIAC ARREST [None]
